FAERS Safety Report 18551944 (Version 1)
Quarter: 2020Q4

REPORT INFORMATION
  Report Type: Spontaneous
  Country: TR (occurrence: TR)
  Receive Date: 20201126
  Receipt Date: 20201126
  Transmission Date: 20210114
  Serious: Yes (Hospitalization, Other)
  Sender: FDA-Public Use
  Company Number: TR-SUN PHARMACEUTICAL INDUSTRIES LTD-2020RR-268898

PATIENT
  Age: 13 Year
  Sex: Female
  Weight: 28 kg

DRUGS (4)
  1. METHOTREXATE. [Suspect]
     Active Substance: METHOTREXATE
     Indication: TAKAYASU^S ARTERITIS
     Dosage: 15 MILLIGRAM, WEEKLY
     Route: 065
  2. CIPROFLOXACIN. [Concomitant]
     Active Substance: CIPROFLOXACIN
     Indication: SALMONELLA BACTERAEMIA
     Dosage: UNK
     Route: 065
  3. PREDNISOLONE. [Suspect]
     Active Substance: PREDNISOLONE
     Indication: TAKAYASU^S ARTERITIS
     Dosage: 1 MILLIGRAM/KILOGRAM, DAILY
     Route: 065
  4. AMIKACIN. [Concomitant]
     Active Substance: AMIKACIN
     Indication: SALMONELLA BACTERAEMIA
     Dosage: UNK
     Route: 065

REACTIONS (3)
  - Pancytopenia [Recovering/Resolving]
  - Pneumothorax [Unknown]
  - Myopathy [Unknown]
